FAERS Safety Report 9294208 (Version 1)
Quarter: 2013Q3

REPORT INFORMATION
  Report Type: Spontaneous
  Country: US (occurrence: None)
  Receive Date: 20130516
  Receipt Date: 20130516
  Transmission Date: 20140515
  Serious: No
  Sender: FDA-Public Use
  Company Number: None

PATIENT
  Age: 55 Year
  Sex: Female
  Weight: 71.22 kg

DRUGS (1)
  1. ACTOPLUS MET [Suspect]
     Indication: DIABETES MELLITUS
     Dosage: 15/850;1 BID; ORAL
     Route: 048
     Dates: start: 2008

REACTIONS (3)
  - Blood glucose increased [None]
  - Product substitution issue [None]
  - No therapeutic response [None]
